FAERS Safety Report 6264756-8 (Version None)
Quarter: 2009Q3

REPORT INFORMATION
  Report Type: 
  Country: None (occurrence: None)
  Receive Date: 20090710
  Receipt Date: 20090707
  Transmission Date: 20100115
  Serious: Yes (Other)
  Sender: FDA-Public Use
  Company Number: US-ASTRAZENECA-2009UW06627

PATIENT

DRUGS (4)
  1. SEROQUEL [Suspect]
     Dosage: 200 MG AT 5:00 PM; 400 MG HS; 25 MG PRN / ON SEROQUEL FOR YEARS
     Route: 048
  2. LITHIUM CARBONATE [Concomitant]
  3. LAMICTAL [Concomitant]
  4. CYMBALTA [Concomitant]

REACTIONS (1)
  - BLINDNESS [None]
